FAERS Safety Report 25755050 (Version 1)
Quarter: 2025Q3

REPORT INFORMATION
  Report Type: Spontaneous
  Country: EU (occurrence: EU)
  Receive Date: 20250903
  Receipt Date: 20250903
  Transmission Date: 20251021
  Serious: Yes (Other)
  Sender: AUROBINDO
  Company Number: EU-INFARMED-V202508-479

PATIENT
  Age: 66 Year
  Sex: Female
  Weight: 58 kg

DRUGS (1)
  1. DOCETAXEL [Suspect]
     Active Substance: DOCETAXEL
     Indication: Breast cancer
     Route: 042
     Dates: start: 20250818, end: 20250818

REACTIONS (4)
  - Flushing [Recovered/Resolved]
  - Wheezing [Recovered/Resolved]
  - Respiratory distress [Recovered/Resolved]
  - Malaise [Recovered/Resolved]

NARRATIVE: CASE EVENT DATE: 20250818
